FAERS Safety Report 9291714 (Version 2)
Quarter: 2013Q2

REPORT INFORMATION
  Report Type: Spontaneous
  Country: ZA (occurrence: ZA)
  Receive Date: 20130516
  Receipt Date: 20130523
  Transmission Date: 20140414
  Serious: Yes (Other)
  Sender: FDA-Public Use
  Company Number: ZA-ABBOTT-13X-143-1089761-00

PATIENT
  Age: 50 Year
  Sex: Male

DRUGS (1)
  1. EPILIM CR [Suspect]
     Indication: BIPOLAR DISORDER
     Route: 048

REACTIONS (1)
  - Thrombotic thrombocytopenic purpura [Unknown]
